FAERS Safety Report 9773562 (Version 1)
Quarter: 2013Q4

REPORT INFORMATION
  Report Type: Spontaneous
  Country: GB (occurrence: GB)
  Receive Date: 20131219
  Receipt Date: 20131219
  Transmission Date: 20140711
  Serious: Yes (Other)
  Sender: FDA-Public Use
  Company Number: PHHY2013GB147123

PATIENT
  Age: 41 Year
  Sex: Female

DRUGS (7)
  1. ATENOLOL [Suspect]
     Route: 048
     Dates: end: 201311
  2. PREDNISOLONE [Suspect]
     Indication: EAR INFECTION
     Dosage: 6 DF, DAILY
     Route: 048
     Dates: start: 20130909
  3. PREDNISOLONE [Suspect]
     Dosage: 5 DF, DAILY
     Route: 048
  4. PREDNISOLONE [Suspect]
     Dosage: 4 DF, DAILY
     Route: 048
  5. PREDNISOLONE [Suspect]
     Dosage: 3 DF, DAILY
     Route: 048
  6. PREDNISOLONE [Suspect]
     Dosage: 2 DF, DAILY
     Route: 048
     Dates: end: 20131003
  7. PROPRANOLOL [Concomitant]
     Dosage: 1 OR 2 TABLETS DAILY

REACTIONS (7)
  - Irritable bowel syndrome [Recovering/Resolving]
  - Condition aggravated [Recovering/Resolving]
  - Heart rate increased [Recovering/Resolving]
  - Gait disturbance [Not Recovered/Not Resolved]
  - Muscular weakness [Recovering/Resolving]
  - Oedema peripheral [Not Recovered/Not Resolved]
  - Depression [Recovering/Resolving]
